FAERS Safety Report 21194932 (Version 3)
Quarter: 2022Q4

REPORT INFORMATION
  Report Type: Report from Study
  Country: US (occurrence: US)
  Receive Date: 20220810
  Receipt Date: 20221029
  Transmission Date: 20230113
  Serious: No
  Sender: FDA-Public Use
  Company Number: US-NOVARTISTESTPH-NVSC2022US180716

PATIENT
  Sex: Female

DRUGS (2)
  1. TASIGNA [Suspect]
     Active Substance: NILOTINIB
     Indication: Product used for unknown indication
     Dosage: UNK
     Route: 048
  2. TASIGNA [Suspect]
     Active Substance: NILOTINIB
     Dosage: UNK (FROM 4 PILLS TO 3)
     Route: 048

REACTIONS (6)
  - Renal function test abnormal [Unknown]
  - Feeling abnormal [Unknown]
  - Dyspepsia [Unknown]
  - Diarrhoea [Unknown]
  - Pruritus [Unknown]
  - Liver disorder [Unknown]
